FAERS Safety Report 8130289-7 (Version None)
Quarter: 2012Q1

REPORT INFORMATION
  Report Type: 
  Country: None (occurrence: None)
  Receive Date: 20120210
  Receipt Date: 20120207
  Transmission Date: 20120608
  Serious: Yes (Other)
  Sender: FDA-Public Use
  Company Number: PHHY2012AR010890

PATIENT
  Sex: Male

DRUGS (1)
  1. TRILEPTAL [Suspect]
     Indication: EPILEPSY
     Dosage: 600 MG, TID
     Dates: start: 20110916

REACTIONS (5)
  - LOSS OF CONSCIOUSNESS [None]
  - SELF INJURIOUS BEHAVIOUR [None]
  - INSOMNIA [None]
  - DAYDREAMING [None]
  - EPILEPSY [None]
